FAERS Safety Report 11052067 (Version 1)
Quarter: 2015Q2

REPORT INFORMATION
  Report Type: Spontaneous
  Country: SE (occurrence: SE)
  Receive Date: 20150421
  Receipt Date: 20150421
  Transmission Date: 20150821
  Serious: Yes (Disabling, Other)
  Sender: FDA-Public Use
  Company Number: SE-TEVA-555036ISR

PATIENT
  Age: 25 Year
  Sex: Male

DRUGS (3)
  1. CONCERTA [Concomitant]
     Active Substance: METHYLPHENIDATE HYDROCHLORIDE
  2. PROPAVAN 25 MG TABLETT [Concomitant]
     Active Substance: PROPIOMAZINE
  3. ESCITALOPRAM [Suspect]
     Active Substance: ESCITALOPRAM OXALATE
     Indication: DEPRESSION
     Dosage: 10 MILLIGRAM DAILY;
     Route: 048

REACTIONS (7)
  - Somnolence [Recovered/Resolved]
  - Anxiety [Recovered/Resolved]
  - Stress [Recovered/Resolved]
  - Product substitution issue [None]
  - Product substitution issue [Recovered/Resolved]
  - Gait disturbance [None]
  - Product quality issue [None]

NARRATIVE: CASE EVENT DATE: 20150301
